FAERS Safety Report 25385868 (Version 11)
Quarter: 2025Q4

REPORT INFORMATION
  Report Type: Report from Study
  Country: BR (occurrence: BR)
  Receive Date: 20250602
  Receipt Date: 20251226
  Transmission Date: 20260117
  Serious: Yes (Hospitalization, Other)
  Sender: TAKEDA
  Company Number: BR-TAKEDA-2025TUS050550

PATIENT
  Age: 47 Year
  Sex: Female

DRUGS (12)
  1. HUMAN IMMUNOGLOBULIN G\HYALURONIDASE RECOMBINANT HUMAN [Suspect]
     Active Substance: HUMAN IMMUNOGLOBULIN G\HYALURONIDASE (HUMAN RECOMBINANT)
     Indication: Primary immunodeficiency syndrome
     Dosage: UNK
  2. HUMAN IMMUNOGLOBULIN G\HYALURONIDASE RECOMBINANT HUMAN [Suspect]
     Active Substance: HUMAN IMMUNOGLOBULIN G\HYALURONIDASE (HUMAN RECOMBINANT)
     Indication: Immunodeficiency
     Dosage: 20 GRAM, 1/WEEK
  3. HUMAN IMMUNOGLOBULIN G\HYALURONIDASE RECOMBINANT HUMAN [Suspect]
     Active Substance: HUMAN IMMUNOGLOBULIN G\HYALURONIDASE (HUMAN RECOMBINANT)
     Indication: Small fibre neuropathy
     Dosage: 20 GRAM, 1/WEEK
  4. HUMAN IMMUNOGLOBULIN G\HYALURONIDASE RECOMBINANT HUMAN [Suspect]
     Active Substance: HUMAN IMMUNOGLOBULIN G\HYALURONIDASE (HUMAN RECOMBINANT)
     Dosage: 30 GRAM, 1/WEEK
  5. HUMAN IMMUNOGLOBULIN G\HYALURONIDASE RECOMBINANT HUMAN [Suspect]
     Active Substance: HUMAN IMMUNOGLOBULIN G\HYALURONIDASE (HUMAN RECOMBINANT)
     Dosage: 20 GRAM, 1/WEEK
  6. HUMAN IMMUNOGLOBULIN G\HYALURONIDASE RECOMBINANT HUMAN [Suspect]
     Active Substance: HUMAN IMMUNOGLOBULIN G\HYALURONIDASE (HUMAN RECOMBINANT)
     Dosage: UNK UNK, 1/WEEK
  7. HUMAN IMMUNOGLOBULIN G\HYALURONIDASE RECOMBINANT HUMAN [Suspect]
     Active Substance: HUMAN IMMUNOGLOBULIN G\HYALURONIDASE (HUMAN RECOMBINANT)
     Dosage: UNK
  8. HUMAN IMMUNOGLOBULIN G\HYALURONIDASE RECOMBINANT HUMAN [Suspect]
     Active Substance: HUMAN IMMUNOGLOBULIN G\HYALURONIDASE (HUMAN RECOMBINANT)
     Dosage: 80 GRAM, MONTHLY
  9. HUMAN IMMUNOGLOBULIN G\HYALURONIDASE RECOMBINANT HUMAN [Suspect]
     Active Substance: HUMAN IMMUNOGLOBULIN G\HYALURONIDASE (HUMAN RECOMBINANT)
     Dosage: UNK
  10. HUMAN IMMUNOGLOBULIN G\HYALURONIDASE RECOMBINANT HUMAN [Suspect]
     Active Substance: HUMAN IMMUNOGLOBULIN G\HYALURONIDASE (HUMAN RECOMBINANT)
     Dosage: 200 MILLILITER
  11. HUMAN IMMUNOGLOBULIN G [Suspect]
     Active Substance: HUMAN IMMUNOGLOBULIN G
     Indication: Small fibre neuropathy
     Dosage: 80 GRAM, MONTHLY
  12. HUMAN IMMUNOGLOBULIN G [Suspect]
     Active Substance: HUMAN IMMUNOGLOBULIN G
     Indication: Immunodeficiency
     Dosage: UNK

REACTIONS (64)
  - Vena cava injury [Unknown]
  - Muscle contracture [Unknown]
  - Aspiration [Unknown]
  - Impaired gastric emptying [Unknown]
  - Eosinophilic cystitis [Unknown]
  - Bladder pain [Unknown]
  - Urinary tract infection pseudomonal [Unknown]
  - Urinary tract infection [Unknown]
  - Cough [Unknown]
  - Tremor [Unknown]
  - Incorrect drug administration rate [Unknown]
  - Poor venous access [Unknown]
  - Complication associated with device [Unknown]
  - Device physical property issue [Unknown]
  - Product prescribing error [Unknown]
  - Device infusion issue [Unknown]
  - Inappropriate schedule of product administration [Unknown]
  - Feeling of despair [Unknown]
  - Panic attack [Unknown]
  - Product administration error [Unknown]
  - Bronchospasm [Unknown]
  - Pain [Unknown]
  - Eructation [Unknown]
  - Snoring [Unknown]
  - Wheezing [Unknown]
  - Dyspnoea exertional [Unknown]
  - Dysphagia [Unknown]
  - Autonomic nervous system imbalance [Unknown]
  - Product preparation error [Unknown]
  - Incorrect dose administered [Unknown]
  - Post-traumatic stress disorder [Unknown]
  - Gait inability [Unknown]
  - Autonomic nervous system imbalance [Unknown]
  - Hyperacusis [Unknown]
  - Tinnitus [Unknown]
  - Dry mouth [Unknown]
  - Body temperature fluctuation [Unknown]
  - Blood lactate dehydrogenase abnormal [Unknown]
  - Haemorrhagic cyst [Unknown]
  - Polyuria [Unknown]
  - Glucose urine present [Unknown]
  - Wrong technique in device usage process [Unknown]
  - Device malfunction [Recovered/Resolved]
  - Body fat disorder [Unknown]
  - Puncture site erythema [Unknown]
  - Nodule [Unknown]
  - Product administered at inappropriate site [Unknown]
  - Dermatitis contact [Unknown]
  - Product contamination [Unknown]
  - Balance disorder [Unknown]
  - Vertigo [Unknown]
  - Muscle spasms [Unknown]
  - Amnesia [Unknown]
  - Abdominal pain upper [Unknown]
  - Infusion site bruising [Unknown]
  - Infusion site nodule [Unknown]
  - Malaise [Unknown]
  - Dizziness [Unknown]
  - Rash [Unknown]
  - Infusion site pain [Unknown]
  - Vomiting [Unknown]
  - Headache [Unknown]
  - Influenza [Not Recovered/Not Resolved]
  - Chest pain [Unknown]

NARRATIVE: CASE EVENT DATE: 20250531
